FAERS Safety Report 8927106 (Version 2)
Quarter: 2013Q2

REPORT INFORMATION
  Report Type: Report from Study
  Country: JP (occurrence: JP)
  Receive Date: 20121127
  Receipt Date: 20130520
  Transmission Date: 20140414
  Serious: Yes (Other)
  Sender: FDA-Public Use
  Company Number: JP-OTSUKA-JP-2012-16464

PATIENT
  Age: 79 Year
  Sex: Female
  Weight: 56.9 kg

DRUGS (13)
  1. SAMSCA [Suspect]
     Indication: FLUID RETENTION
     Dosage: 3.75 MG MILLIGRAM(S), QAM
     Route: 048
     Dates: start: 20120809, end: 20120810
  2. SAMSCA [Suspect]
     Dosage: 7.5 MG MILLIGRAM(S), QAM
     Route: 048
     Dates: start: 20120811, end: 20120817
  3. ALLOPURINOL [Concomitant]
     Dosage: 100 MG MILLIGRAM(S), DAILY DOSE
     Route: 048
     Dates: end: 20120807
  4. LANSOPRAZOLE [Concomitant]
     Indication: PROPHYLAXIS
     Dosage: 15 MG MILLIGRAM(S), DAILY DOSE
     Route: 048
     Dates: end: 20120807
  5. APORASNON [Concomitant]
     Indication: CARDIAC FAILURE
     Dosage: 25 MG MILLIGRAM(S), DAILY DOSE
     Route: 048
     Dates: end: 20120807
  6. MUCOSTA [Concomitant]
     Indication: PROPHYLAXIS
     Dosage: 200 MG MILLIGRAM(S), DAILY DOSE
     Route: 048
     Dates: end: 20120822
  7. PLETAAL [Concomitant]
     Dosage: 200 MG MILLIGRAM(S), DAILY DOSE
     Route: 048
     Dates: end: 20120823
  8. WARFARIN [Concomitant]
     Indication: PROPHYLAXIS
     Dosage: 1.5 MG MILLIGRAM(S), DAILY DOSE
     Route: 048
  9. LASIX [Concomitant]
     Dosage: 40 MG MILLIGRAM(S), DAILY DOSE
     Route: 048
  10. CELECOX [Concomitant]
     Dosage: 200 MG MILLIGRAM(S), DAILY DOSE
     Route: 048
     Dates: start: 20120804, end: 20120822
  11. ZYLORIC [Concomitant]
     Dosage: 100 MG MILLIGRAM(S), DAILY DOSE
     Route: 048
     Dates: start: 20120808
  12. TAKEPRON [Concomitant]
     Indication: PROPHYLAXIS
     Dosage: 15 MG MILLIGRAM(S), DAILY DOSE
     Route: 048
     Dates: start: 20120808
  13. ALDACTONE A [Concomitant]
     Indication: CARDIAC FAILURE
     Dosage: 25 MG MILLIGRAM(S), DAILY DOSE
     Route: 048
     Dates: start: 20120808

REACTIONS (2)
  - Anaemia [Recovering/Resolving]
  - Thirst [Recovering/Resolving]
